FAERS Safety Report 8042691 (Version 4)
Quarter: 2014Q2

REPORT INFORMATION
  Report Type: Spontaneous
  Country: CA (occurrence: CA)
  Receive Date: 20110718
  Receipt Date: 20140429
  Transmission Date: 20141212
  Serious: Yes (Hospitalization, Other)
  Sender: FDA-Public Use
  Company Number: CA-ROCHE-GNE321389

PATIENT
  Age: 55 Year
  Sex: Female

DRUGS (14)
  1. XOLAIR [Suspect]
     Indication: ASTHMA
     Route: 058
     Dates: start: 20100831, end: 20120117
  2. XOLAIR [Suspect]
     Route: 065
     Dates: start: 201205
  3. XOLAIR [Suspect]
     Route: 058
     Dates: start: 20140422
  4. SYMBICORT [Concomitant]
     Route: 065
     Dates: start: 2010
  5. SINGULAIR [Concomitant]
     Route: 065
     Dates: start: 2011
  6. VENTOLIN [Concomitant]
     Route: 065
     Dates: start: 2011
  7. CRESTOR [Concomitant]
  8. MICARDIS [Concomitant]
  9. CELEBREX [Concomitant]
     Route: 065
     Dates: start: 2010
  10. LASIX [Concomitant]
  11. TELMISARTAN [Concomitant]
  12. ROSUVASTATIN [Concomitant]
  13. NITRO-SPRAY [Concomitant]
  14. NASONEX [Concomitant]

REACTIONS (8)
  - Feeling abnormal [Unknown]
  - Lymphadenopathy [Recovering/Resolving]
  - Dysphonia [Recovering/Resolving]
  - Loss of consciousness [Unknown]
  - Malaise [Unknown]
  - Dizziness [Unknown]
  - Paraesthesia [Unknown]
  - Lymphocele [Unknown]
